FAERS Safety Report 4522790-X (Version None)
Quarter: 2004Q4

REPORT INFORMATION
  Report Type: 
  Country: None (occurrence: None)
  Receive Date: 20041208
  Receipt Date: 20041124
  Transmission Date: 20050328
  Serious: Yes (Death)
  Sender: FDA-Public Use
  Company Number: ZONI002067

PATIENT
  Age: 33 Year
  Sex: Male

DRUGS (10)
  1. EXCEGRAN (ZONISAMIDE) [Suspect]
     Indication: EPILEPSY
     Dosage: ORAL
     Route: 048
     Dates: start: 20030201
  2. PHENYTOIN [Suspect]
     Indication: EPILEPSY
     Dosage: 300 MG
     Dates: start: 20021205, end: 20030207
  3. PHENOBARBITAL TAB [Suspect]
     Indication: EPILEPSY
     Dosage: 120 MG
     Dates: start: 20021229, end: 20030207
  4. LANSOPRAZOLE [Concomitant]
  5. METHYCOBAL (MECOBALAMIN) [Concomitant]
  6. LONOXIN (LOXOPROFEN SODIUM0 [Concomitant]
  7. MEIACT (CEFDITOREN PIVOXIL) [Concomitant]
  8. MEIACT(CEFDITOREN HYDROCHLORIDE) [Concomitant]
  9. ACUATIM (NADIFLOXACIN) [Concomitant]
  10. MS REISIPPU (COLD PACK) [Concomitant]

REACTIONS (33)
  - ACIDOSIS [None]
  - ACUTE RESPIRATORY DISTRESS SYNDROME [None]
  - CARDIAC ARREST [None]
  - CONDITION AGGRAVATED [None]
  - CONVULSION [None]
  - DELIRIUM [None]
  - DEPRESSED LEVEL OF CONSCIOUSNESS [None]
  - DIALYSIS [None]
  - DISSEMINATED INTRAVASCULAR COAGULATION [None]
  - DRUG HYPERSENSITIVITY [None]
  - ENTERITIS [None]
  - ENTEROCOCCAL INFECTION [None]
  - GASTROENTERITIS PSEUDOMONAS [None]
  - GASTROENTERITIS STAPHYLOCOCCAL [None]
  - GENERALISED ERYTHEMA [None]
  - HEPATIC FAILURE [None]
  - HYPERAMMONAEMIA [None]
  - HYPOTHERMIA [None]
  - INFLAMMATION [None]
  - LEUKOPENIA [None]
  - LIVER DISORDER [None]
  - NASOPHARYNGITIS [None]
  - PHARYNGEAL OEDEMA [None]
  - PNEUMONIA [None]
  - PNEUMONIA STAPHYLOCOCCAL [None]
  - PYREXIA [None]
  - RASH GENERALISED [None]
  - RECTAL HAEMORRHAGE [None]
  - RENAL FAILURE ACUTE [None]
  - RESPIRATORY DISORDER [None]
  - SEPTIC SHOCK [None]
  - STEVENS-JOHNSON SYNDROME [None]
  - THERAPY NON-RESPONDER [None]
